FAERS Safety Report 6151535-5 (Version None)
Quarter: 2009Q2

REPORT INFORMATION
  Report Type: 
  Country: None (occurrence: None)
  Receive Date: 20090410
  Receipt Date: 20090406
  Transmission Date: 20091009
  Serious: Yes (Death)
  Sender: FDA-Public Use
  Company Number: US-ROCHE-618146

PATIENT
  Sex: Male
  Weight: 136.1 kg

DRUGS (6)
  1. XELODA [Suspect]
     Indication: COLON CANCER
     Dosage: DAYS 1-14 FOR 21 DAYS.
     Route: 065
     Dates: start: 20090219
  2. MELOXICAM [Suspect]
     Indication: ARTHRITIS
     Dosage: TAKEN PRN.
     Route: 048
  3. XANAX [Suspect]
     Indication: ANXIETY
     Dosage: TAKEN PRN 1-2 PER DAY.
     Route: 048
  4. ZOFRAN [Concomitant]
     Indication: NAUSEA
     Dosage: TAKEN 8 PRN.
     Route: 048
     Dates: start: 20090219
  5. OXYCODONE HCL [Concomitant]
     Indication: PAIN
     Dosage: TAKEN PRN.
     Route: 048
  6. COMPAZINE [Concomitant]
     Indication: NAUSEA
     Dosage: TAKEN 6 PRN.
     Route: 048
     Dates: start: 20090219

REACTIONS (1)
  - CARDIAC DISORDER [None]
